FAERS Safety Report 20012535 (Version 2)
Quarter: 2022Q1

REPORT INFORMATION
  Report Type: Report from Study
  Country: US (occurrence: US)
  Receive Date: 20211029
  Receipt Date: 20220104
  Transmission Date: 20220423
  Serious: Yes (Other)
  Sender: FDA-Public Use
  Company Number: US-NOVARTISPH-NVSC2021US243577

PATIENT
  Sex: Male

DRUGS (1)
  1. COSENTYX [Suspect]
     Active Substance: SECUKINUMAB
     Indication: Psoriatic arthropathy
     Dosage: UNK UNK, QMO (Q 4 WEEKS) (BENEATH THE SKIN, USUALLY VIA INJECTION)
     Route: 058
     Dates: start: 2019, end: 202012

REACTIONS (6)
  - Uveitis [Unknown]
  - Episcleritis [Unknown]
  - Back pain [Unknown]
  - Arthritis [Unknown]
  - Gait disturbance [Unknown]
  - Pain in extremity [Unknown]
